FAERS Safety Report 6521503-X (Version None)
Quarter: 2009Q4

REPORT INFORMATION
  Report Type: 
  Country: None (occurrence: None)
  Receive Date: 20091230
  Receipt Date: 20091221
  Transmission Date: 20100525
  Serious: Yes (Hospitalization)
  Sender: FDA-Public Use
  Company Number: US-ASTRAZENECA-2009SE33250

PATIENT
  Age: 92 Year
  Sex: Female
  Weight: 63.5 kg

DRUGS (4)
  1. CRESTOR [Suspect]
     Route: 048
     Dates: end: 20080501
  2. CRESTOR [Suspect]
     Route: 048
     Dates: start: 20080501
  3. METFORMIN [Concomitant]
  4. ASPIRIN [Concomitant]

REACTIONS (14)
  - AMNESIA [None]
  - BREATH ODOUR [None]
  - CEREBROVASCULAR ACCIDENT [None]
  - CYSTITIS [None]
  - DIARRHOEA [None]
  - DYSKINESIA [None]
  - GAZE PALSY [None]
  - HEPATIC ENZYME INCREASED [None]
  - HEPATIC FUNCTION ABNORMAL [None]
  - INCONTINENCE [None]
  - KIDNEY INFECTION [None]
  - MUSCLE RIGIDITY [None]
  - PAIN [None]
  - URINE ODOUR ABNORMAL [None]
